FAERS Safety Report 10370329 (Version 1)
Quarter: 2014Q1

REPORT INFORMATION
  Report Type: Spontaneous
  Country: US (occurrence: None)
  Receive Date: 20140306
  Receipt Date: 20140306
  Transmission Date: 20141002
  Serious: Yes (Hospitalization, Other)
  Sender: FDA-Public Use
  Company Number: 163-21880-13070831

PATIENT
  Age: 71 Year
  Sex: Male
  Weight: 85.3 kg

DRUGS (9)
  1. REVLIMID [Suspect]
     Indication: PLASMA CELL MYELOMA
     Route: 048
     Dates: start: 20100101
  2. DILAUDID [Concomitant]
  3. CIPRO [Concomitant]
  4. OMEPRAZOLE [Concomitant]
  5. VITAMIN D3 [Concomitant]
  6. CALCIUM [Concomitant]
  7. ASPIRIN (ACETYLSALICYLIC ACID) (UNKNOWN) (ACETYLSALICYLIC ACID) [Concomitant]
  8. PROBIOTIC [Concomitant]
  9. VITAMIN B12 [Concomitant]

REACTIONS (4)
  - Cervical vertebral fracture [None]
  - Weight decreased [None]
  - Escherichia infection [None]
  - Pneumonia [None]
